FAERS Safety Report 12088473 (Version 1)
Quarter: 2016Q1

REPORT INFORMATION
  Report Type: Spontaneous
  Country: US (occurrence: US)
  Receive Date: 20160218
  Receipt Date: 20160218
  Transmission Date: 20160526
  Serious: Yes (Other)
  Sender: FDA-Public Use
  Company Number: US-HOSPIRA-3175437

PATIENT
  Age: 46 Year
  Sex: Female

DRUGS (3)
  1. ENBREL [Suspect]
     Active Substance: ETANERCEPT
     Indication: PSORIATIC ARTHROPATHY
     Dosage: 7.5 MG
     Route: 065
     Dates: start: 20141103
  2. METHOTREXATE [Suspect]
     Active Substance: METHOTREXATE
     Indication: PRODUCT USED FOR UNKNOWN INDICATION
     Dosage: WEEKLY
     Dates: end: 201504
  3. METHOTREXATE [Suspect]
     Active Substance: METHOTREXATE
     Indication: PRODUCT USED FOR UNKNOWN INDICATION
     Dosage: WEEKLY
     Dates: start: 201504, end: 20160205

REACTIONS (9)
  - Psoriatic arthropathy [Unknown]
  - Neuropathy peripheral [Unknown]
  - Pain in extremity [Unknown]
  - Musculoskeletal pain [Not Recovered/Not Resolved]
  - Injection site rash [Recovered/Resolved]
  - Arthralgia [Not Recovered/Not Resolved]
  - Injection site swelling [Recovered/Resolved]
  - Injection site erythema [Recovered/Resolved]
  - Fatigue [Unknown]

NARRATIVE: CASE EVENT DATE: 2014
